FAERS Safety Report 19042702 (Version 1)
Quarter: 2021Q1

REPORT INFORMATION
  Report Type: Spontaneous
  Country: US (occurrence: US)
  Receive Date: 20210322
  Receipt Date: 20210322
  Transmission Date: 20210420
  Serious: Yes (Hospitalization)
  Sender: FDA-Public Use
  Company Number: None

PATIENT
  Sex: Female

DRUGS (24)
  1. FOLIC ACID. [Concomitant]
     Active Substance: FOLIC ACID
  2. SERTRALINE [Concomitant]
     Active Substance: SERTRALINE HYDROCHLORIDE
  3. BENLYSTA [Suspect]
     Active Substance: BELIMUMAB
     Indication: SYSTEMIC LUPUS ERYTHEMATOSUS
     Route: 058
     Dates: start: 20210221
  4. CLONAZEPAM. [Concomitant]
     Active Substance: CLONAZEPAM
  5. CLINDAMYCIN. [Concomitant]
     Active Substance: CLINDAMYCIN
  6. LINZESS [Concomitant]
     Active Substance: LINACLOTIDE
  7. COLESEVELAM [Concomitant]
     Active Substance: COLESEVELAM
  8. CYCLOBENZAPR [Concomitant]
     Active Substance: CYCLOBENZAPRINE
  9. LACTULOSE. [Concomitant]
     Active Substance: LACTULOSE
  10. MELATONIN [Concomitant]
     Active Substance: MELATONIN
  11. MEMANTINE. [Concomitant]
     Active Substance: MEMANTINE
  12. VALACYCLOVIR [Concomitant]
     Active Substance: VALACYCLOVIR HYDROCHLORIDE
  13. CLOZAPINE. [Concomitant]
     Active Substance: CLOZAPINE
  14. CYANOCOBALAM [Concomitant]
     Active Substance: CYANOCOBALAMIN
  15. DEXILANT [Concomitant]
     Active Substance: DEXLANSOPRAZOLE
  16. HYDROXYCHLOR [Concomitant]
     Active Substance: HYDROXYCHLOROQUINE
  17. METHOTREXATE. [Concomitant]
     Active Substance: METHOTREXATE
  18. BELBUCA MIS [Concomitant]
  19. MONTELUKAST [Concomitant]
     Active Substance: MONTELUKAST SODIUM
  20. FUROSEMIDE. [Concomitant]
     Active Substance: FUROSEMIDE
  21. METHYLPRED [Concomitant]
     Active Substance: METHYLPREDNISOLONE
  22. VITAMIN D [Concomitant]
     Active Substance: VITAMIN D NOS
  23. XARELTO [Concomitant]
     Active Substance: RIVAROXABAN
  24. LEVOCRANITIN [Concomitant]

REACTIONS (1)
  - Hospitalisation [None]
